FAERS Safety Report 18796001 (Version 1)
Quarter: 2021Q1

REPORT INFORMATION
  Report Type: Spontaneous
  Country: FR (occurrence: FR)
  Receive Date: 20210127
  Receipt Date: 20210127
  Transmission Date: 20210419
  Serious: Yes (Hospitalization)
  Sender: FDA-Public Use
  Company Number: FR-ELI_LILLY_AND_COMPANY-FR202101009603

PATIENT
  Age: 26 Year
  Sex: Male
  Weight: 75 kg

DRUGS (3)
  1. NOZINAN [LEVOMEPROMAZINE] [Interacting]
     Active Substance: LEVOMEPROMAZINE
     Indication: MANIA
     Dosage: 50 UNK, DAILY
     Route: 048
     Dates: start: 20201222, end: 20201222
  2. ZYPREXA [Suspect]
     Active Substance: OLANZAPINE
     Indication: MANIA
     Dosage: 10 MG, DAILY
     Route: 048
     Dates: start: 20201120, end: 20201228
  3. DEPAKINE [VALPROATE SODIUM] [Interacting]
     Active Substance: VALPROATE SODIUM
     Indication: MANIA
     Dosage: 1500 MG, DAILY
     Route: 048
     Dates: start: 20201120, end: 20201227

REACTIONS (2)
  - Neutropenia [Not Recovered/Not Resolved]
  - Drug interaction [Unknown]

NARRATIVE: CASE EVENT DATE: 20201224
